FAERS Safety Report 9817156 (Version 1)
Quarter: 2014Q1

REPORT INFORMATION
  Report Type: Spontaneous
  Country: US (occurrence: US)
  Receive Date: 20140114
  Receipt Date: 20140114
  Transmission Date: 20141002
  Serious: Yes (Death)
  Sender: FDA-Public Use
  Company Number: US-PFIZER INC-2014007897

PATIENT
  Age: 47 Year
  Sex: Female

DRUGS (7)
  1. DEXTROMETHORPHAN HBR [Suspect]
  2. ALPRAZOLAM [Suspect]
  3. HEROIN [Suspect]
  4. QUETIAPINE [Suspect]
  5. QUININE [Suspect]
  6. DILTIAZEM [Suspect]
  7. CODEINE [Suspect]

REACTIONS (1)
  - Drug abuse [Fatal]
